FAERS Safety Report 7894225-0 (Version None)
Quarter: 2011Q4

REPORT INFORMATION
  Report Type: 
  Country: None (occurrence: None)
  Receive Date: 20111104
  Receipt Date: 20111101
  Transmission Date: 20120403
  Serious: Yes (Hospitalization)
  Sender: FDA-Public Use
  Company Number: PHHY2011NL96537

PATIENT
  Sex: Female
  Weight: 61 kg

DRUGS (3)
  1. DICLOFENAC SODIUM [Suspect]
     Indication: POSTOPERATIVE ANALGESIA
     Dosage: 50 MG, TID
     Route: 048
     Dates: start: 20111007, end: 20111014
  2. FRAGMIN [Concomitant]
     Indication: PROPHYLAXIS
     Dosage: 20 MG PER TIME (7500 INJECTION FLUID 25.000 IU/ML 0.3 ML)
     Dates: start: 20111007, end: 20111014
  3. OMEPRAZOLE [Concomitant]
     Indication: PROPHYLAXIS
     Dosage: 20 MG
     Dates: start: 20111007, end: 20111014

REACTIONS (3)
  - MUCOSAL EROSION [None]
  - DRUG INTERACTION [None]
  - RECTAL HAEMORRHAGE [None]
